FAERS Safety Report 7811176-8 (Version None)
Quarter: 2011Q4

REPORT INFORMATION
  Report Type: 
  Country: None (occurrence: None)
  Receive Date: 20111013
  Receipt Date: 20111013
  Transmission Date: 20120403
  Serious: Yes (Other)
  Sender: FDA-Public Use
  Company Number: PHHO2011US02089

PATIENT
  Sex: Female
  Weight: 42.9 kg

DRUGS (10)
  1. CITALOPRAM [Concomitant]
     Indication: ANXIETY
  2. CELEXA [Concomitant]
     Indication: ANXIETY
  3. ASPIRIN [Concomitant]
     Indication: BONE PAIN
  4. PERCOCET [Concomitant]
     Indication: PAIN
  5. NEOCON [Concomitant]
     Indication: CONTRACEPTION
     Dosage: UNK
     Dates: start: 20100401, end: 20101201
  6. TYLENOL-500 [Concomitant]
     Indication: BONE PAIN
  7. MOTRIN [Concomitant]
     Indication: BONE PAIN
  8. CELEXA [Concomitant]
     Indication: DEPRESSION
  9. GILENYA [Suspect]
     Indication: MULTIPLE SCLEROSIS
     Dosage: 0.5 MG, UNK
     Route: 048
     Dates: start: 20090331, end: 20110126
  10. TYLENOL-500 [Concomitant]
     Indication: HEADACHE

REACTIONS (7)
  - FATIGUE [None]
  - ABORTION SPONTANEOUS [None]
  - VAGINAL HAEMORRHAGE [None]
  - ABDOMINAL PAIN [None]
  - MATERNAL EXPOSURE DURING PREGNANCY [None]
  - NAUSEA [None]
  - INFLUENZA LIKE ILLNESS [None]
